FAERS Safety Report 5647223-1 (Version None)
Quarter: 2008Q1

REPORT INFORMATION
  Report Type: 
  Country: None (occurrence: None)
  Receive Date: 20080303
  Receipt Date: 20080219
  Transmission Date: 20080703
  Serious: Yes (Other)
  Sender: FDA-Public Use
  Company Number: AU-ROCHE-538234

PATIENT
  Age: 52 Year
  Sex: Female
  Weight: 75 kg

DRUGS (4)
  1. PEGASYS [Suspect]
     Dosage: STRENGTH OF RIBAVIRIN WAS 1200 MG AND ROUTE IS SUBCUTANEOUS.
     Route: 048
     Dates: start: 20061115, end: 20070727
  2. PEGASYS [Suspect]
     Dosage: PATIENT WAS OFF TREATMENT LOT OF TIMES DURING 31 WEEK OF THERAPY.
     Route: 048
  3. AMITRIPTYLINE HCL [Concomitant]
     Route: 048
     Dates: start: 20070420
  4. CLONAZEPAM [Concomitant]
     Route: 048

REACTIONS (9)
  - DECREASED APPETITE [None]
  - DEPRESSION [None]
  - LETHARGY [None]
  - MIGRAINE [None]
  - MOUTH ULCERATION [None]
  - NEUTROPENIA [None]
  - OEDEMA PERIPHERAL [None]
  - STAPHYLOCOCCAL SKIN INFECTION [None]
  - WEIGHT INCREASED [None]
